FAERS Safety Report 5331334-4 (Version None)
Quarter: 2007Q2

REPORT INFORMATION
  Report Type: 
  Country: None (occurrence: None)
  Receive Date: 20070522
  Receipt Date: 20070516
  Transmission Date: 20071010
  Serious: Yes (Other)
  Sender: FDA-Public Use
  Company Number: US-BAYER-200710793BCC

PATIENT
  Age: 45 Year
  Sex: Female
  Weight: 62 kg

DRUGS (1)
  1. ALEVE [Suspect]
     Indication: JOINT SWELLING
     Dosage: TOTAL DAILY DOSE: 220 MG  UNIT DOSE: 220 MG
     Route: 048
     Dates: start: 20070226, end: 20070226

REACTIONS (7)
  - CHEST PAIN [None]
  - DISCOMFORT [None]
  - FOREIGN BODY TRAUMA [None]
  - ODYNOPHAGIA [None]
  - OESOPHAGEAL ULCER [None]
  - STRESS [None]
  - WEIGHT DECREASED [None]
